FAERS Safety Report 25243847 (Version 1)
Quarter: 2025Q2

REPORT INFORMATION
  Report Type: Spontaneous
  Country: US (occurrence: US)
  Receive Date: 20250428
  Receipt Date: 20250428
  Transmission Date: 20250716
  Serious: Yes (Other)
  Sender: COOPERSURGICAL
  Company Number: US-COOPERSURGICAL, INC.-2025CPS003232

PATIENT
  Sex: Female
  Weight: 40.816 kg

DRUGS (2)
  1. PARAGARD T 380A [Suspect]
     Active Substance: COPPER
     Indication: Contraception
     Route: 015
     Dates: start: 20190104
  2. VALIUM [Concomitant]
     Active Substance: DIAZEPAM
     Dates: start: 2010, end: 2022

REACTIONS (8)
  - Reproductive complication associated with device [Unknown]
  - Pelvic inflammatory disease [Unknown]
  - Cyst [Unknown]
  - Anxiety [Unknown]
  - Post-traumatic stress disorder [Unknown]
  - Discomfort [Unknown]
  - Pain [Unknown]
  - Unevaluable event [Unknown]

NARRATIVE: CASE EVENT DATE: 20190101
